FAERS Safety Report 7459446-X (Version None)
Quarter: 2011Q2

REPORT INFORMATION
  Report Type: 
  Country: None (occurrence: None)
  Receive Date: 20110504
  Receipt Date: 20110504
  Transmission Date: 20111010
  Serious: No
  Sender: FDA-Public Use
  Company Number: None

PATIENT
  Age: 37 Year
  Sex: Male
  Weight: 97.5234 kg

DRUGS (1)
  1. AVELOX [Suspect]
     Indication: STAPHYLOCOCCAL INFECTION
     Dosage: 400 MG ONCE A DAY PO
     Route: 048
     Dates: start: 20101205, end: 20101210

REACTIONS (2)
  - MENISCUS LESION [None]
  - TENDONITIS [None]
